FAERS Safety Report 18342339 (Version 1)
Quarter: 2020Q4

REPORT INFORMATION
  Report Type: Report from Study
  Country: None (occurrence: US)
  Receive Date: 20201005
  Receipt Date: 20201005
  Transmission Date: 20210113
  Serious: Yes (Other)
  Sender: FDA-Public Use
  Company Number: US-ABBVIE-20K-163-3590274-00

PATIENT
  Sex: Female

DRUGS (1)
  1. ORILISSA [Suspect]
     Active Substance: ELAGOLIX SODIUM
     Indication: PRODUCT USED FOR UNKNOWN INDICATION
     Route: 048

REACTIONS (7)
  - Onychalgia [Not Recovered/Not Resolved]
  - Dysmenorrhoea [Recovering/Resolving]
  - Discharge [Not Recovered/Not Resolved]
  - Road traffic accident [Not Recovered/Not Resolved]
  - Spinal operation [Unknown]
  - Road traffic accident [Recovered/Resolved]
  - Ingrowing nail [Not Recovered/Not Resolved]
